FAERS Safety Report 5977579-1 (Version None)
Quarter: 2008Q4

REPORT INFORMATION
  Report Type: 
  Country: None (occurrence: None)
  Receive Date: 20081203
  Receipt Date: 20081128
  Transmission Date: 20090506
  Serious: Yes (Life-Threatening, Hospitalization)
  Sender: FDA-Public Use
  Company Number: DE-AVENTIS-200813122DE

PATIENT
  Age: 77 Year
  Sex: Female

DRUGS (4)
  1. METRONIDAZOLE [Suspect]
     Indication: GINGIVITIS
     Dosage: DOSE: NOT REPORTED
     Dates: start: 20080815, end: 20080825
  2. AMOXICILLIN AND CLAVULANATE POTASSIUM [Suspect]
     Indication: GINGIVITIS
     Dosage: DOSE: NOT REPORTED
     Dates: start: 20080815, end: 20080825
  3. CEFTRIAXON [Suspect]
     Indication: DRUG USE FOR UNKNOWN INDICATION
     Dosage: DOSE: NOT REPORTED
  4. CLINDAMYCIN HCL [Suspect]
     Indication: GINGIVITIS
     Dosage: DOSE: NOT REPORTED
     Dates: start: 20080815, end: 20080825

REACTIONS (3)
  - HEPATIC ENZYME INCREASED [None]
  - JAUNDICE [None]
  - LIVER DISORDER [None]
